FAERS Safety Report 21979941 (Version 1)
Quarter: 2023Q1

REPORT INFORMATION
  Report Type: Spontaneous
  Country: PT (occurrence: PT)
  Receive Date: 20230210
  Receipt Date: 20230210
  Transmission Date: 20230418
  Serious: Yes (Other)
  Sender: FDA-Public Use
  Company Number: PT-BoehringerIngelheim-2023-BI-217564

PATIENT
  Age: 63 Year
  Sex: Female

DRUGS (6)
  1. ATROVENT [Suspect]
     Active Substance: IPRATROPIUM BROMIDE
     Indication: Idiopathic pulmonary fibrosis
  2. IPRATROPIUM BROMIDE [Suspect]
     Active Substance: IPRATROPIUM BROMIDE
     Indication: Idiopathic pulmonary fibrosis
  3. Lozartana [Concomitant]
     Indication: Hypertension
     Dosage: 1 TABLET IN THE MORNING AND 1 TABLET AT 7PM
     Route: 048
     Dates: start: 1990, end: 2021
  4. ARADOS [Concomitant]
     Indication: Hypertension
     Dosage: 1 TABLET IN THE MORNING AND 1 TABLET AT 7PM
     Route: 048
     Dates: start: 2021
  5. PANTOPRAZOLE [Concomitant]
     Active Substance: PANTOPRAZOLE
     Indication: Prophylaxis
     Dosage: 1 TABLET FASTING
     Route: 048
     Dates: start: 2019
  6. SYMBICORT [Concomitant]
     Active Substance: BUDESONIDE\FORMOTEROL FUMARATE DIHYDRATE
     Indication: Idiopathic pulmonary fibrosis
     Dosage: 160/4.5ML - 120 DOSES: 1 PUFF WHEN WAKING UP AND 1 PUFF BEFORE GOING TO BED
     Route: 055
     Dates: start: 2016

REACTIONS (3)
  - Idiopathic pulmonary fibrosis [Unknown]
  - Asthmatic crisis [Unknown]
  - Product use in unapproved indication [Unknown]
